FAERS Safety Report 6527253-8 (Version None)
Quarter: 2010Q1

REPORT INFORMATION
  Report Type: 
  Country: None (occurrence: None)
  Receive Date: 20100105
  Receipt Date: 20091224
  Transmission Date: 20100710
  Serious: Yes (Other)
  Sender: FDA-Public Use
  Company Number: US-PFIZER INC-2009307644

PATIENT
  Sex: Male
  Weight: 95 kg

DRUGS (3)
  1. ANSAID [Suspect]
     Indication: MYOSITIS
     Dosage: 100 MG, 2X/DAY
     Route: 048
     Dates: start: 19910101
  2. FLURBIPROFEN [Suspect]
     Indication: MYOSITIS
     Dosage: 100 MG, UNK
     Dates: start: 20091110
  3. SYNTHROID [Concomitant]
     Indication: THYROID DISORDER

REACTIONS (3)
  - DRUG EFFECT DECREASED [None]
  - GASTROINTESTINAL PAIN [None]
  - NEOPLASM MALIGNANT [None]
